FAERS Safety Report 6886012-7 (Version None)
Quarter: 2010Q3

REPORT INFORMATION
  Report Type: 
  Country: None (occurrence: None)
  Receive Date: 20100729
  Receipt Date: 20080808
  Transmission Date: 20110219
  Serious: No
  Sender: FDA-Public Use
  Company Number: US-PFIZER INC-2008067129

PATIENT
  Sex: Male
  Weight: 90.9 kg

DRUGS (4)
  1. CELEBREX [Suspect]
     Indication: ARTHRITIS
     Route: 048
     Dates: start: 20080728
  2. COPPERTONE [Interacting]
     Indication: PROPHYLAXIS
     Route: 061
  3. ZIAC [Concomitant]
  4. SIMVASTATIN [Concomitant]

REACTIONS (2)
  - DRUG INTERACTION [None]
  - UNEVALUABLE EVENT [None]
